FAERS Safety Report 9097204 (Version 3)
Quarter: 2013Q4

REPORT INFORMATION
  Report Type: Spontaneous
  Country: US (occurrence: US)
  Receive Date: 20130212
  Receipt Date: 20131119
  Transmission Date: 20140711
  Serious: Yes (Hospitalization, Other)
  Sender: FDA-Public Use
  Company Number: US-BAYER-2013-017718

PATIENT
  Age: 36 Year
  Sex: Female
  Weight: 117.91 kg

DRUGS (21)
  1. BEYAZ [Suspect]
     Dosage: UNK
     Dates: start: 200706, end: 20120914
  2. YAZ [Suspect]
     Indication: CONTRACEPTION
     Dosage: UNK
     Dates: start: 2004, end: 201208
  3. YAZ [Suspect]
     Indication: CONTRACEPTION
  4. YASMIN [Suspect]
     Indication: CONTRACEPTION
     Dosage: UNK
     Dates: start: 2004, end: 201208
  5. YASMIN [Suspect]
     Indication: CONTRACEPTION
  6. OCELLA [Suspect]
     Indication: CONTRACEPTION
  7. METFORM [Concomitant]
     Dosage: 500 MG, UNK
  8. LISINOPRIL [Concomitant]
  9. AZITHROMYCIN [Concomitant]
     Dosage: 250 MG, UNK
  10. CITALOPRAM [Concomitant]
     Dosage: 10 MG, UNK
  11. LOSARTAN [Concomitant]
     Dosage: 100 MG, DAILY
  12. FLUCONAZOLE [Concomitant]
     Dosage: 150 MG, UNK
  13. VALACICLOVIR [Concomitant]
     Dosage: 500 MG, UNK
  14. FUROSEMIDE [Concomitant]
     Dosage: 20 MG, UNK
  15. CELEXA [Concomitant]
     Dosage: 10 MG, DAILY
  16. MAGNESIUM [Concomitant]
     Dosage: 500 MG, DAILY
  17. OMEGA 3 FISH OIL [Concomitant]
     Dosage: 1000 MG, DAILY
  18. INSULIN [Concomitant]
     Dosage: 30 U, TID
  19. METFORMIN [Concomitant]
     Dosage: 500 MG, BID
  20. COLECALCIFEROL [Concomitant]
     Dosage: 2000 U, DAILY
  21. FOLIC ACID [Concomitant]
     Dosage: DAILY

REACTIONS (3)
  - Deep vein thrombosis [None]
  - Deep vein thrombosis [None]
  - Thrombophlebitis superficial [None]
